FAERS Safety Report 10507319 (Version 1)
Quarter: 2014Q4

REPORT INFORMATION
  Report Type: Spontaneous
  Country: US (occurrence: US)
  Receive Date: 20141009
  Receipt Date: 20141009
  Transmission Date: 20150528
  Serious: Yes (Other)
  Sender: FDA-Public Use
  Company Number: 2014SP003156

PATIENT
  Sex: Female
  Weight: 74 kg

DRUGS (5)
  1. ZYRTEC [Concomitant]
     Active Substance: CETIRIZINE HYDROCHLORIDE
     Indication: HYPERSENSITIVITY
  2. OMNARIS [Suspect]
     Active Substance: CICLESONIDE
     Indication: HYPERSENSITIVITY
     Route: 045
     Dates: start: 2014
  3. OMNARIS [Suspect]
     Active Substance: CICLESONIDE
     Indication: HYPERSENSITIVITY
     Route: 045
     Dates: start: 2013
  4. AERIUS [Concomitant]
     Active Substance: DESLORATADINE
     Indication: HYPERSENSITIVITY
  5. OMNARIS [Suspect]
     Active Substance: CICLESONIDE
     Indication: HYPERSENSITIVITY
     Route: 045
     Dates: start: 201111, end: 2012

REACTIONS (3)
  - Hypoglycaemia [Not Recovered/Not Resolved]
  - Loss of consciousness [Recovered/Resolved]
  - Nasal congestion [Not Recovered/Not Resolved]

NARRATIVE: CASE EVENT DATE: 20120101
